FAERS Safety Report 22093068 (Version 2)
Quarter: 2023Q1

REPORT INFORMATION
  Report Type: Spontaneous
  Country: CN (occurrence: CN)
  Receive Date: 20230314
  Receipt Date: 20230321
  Transmission Date: 20230417
  Serious: Yes (Other)
  Sender: FDA-Public Use
  Company Number: CN-FOSUNKITE-FOSUNKITE-20230175

PATIENT
  Age: 48 Year
  Sex: Female

DRUGS (6)
  1. YESCARTA [Suspect]
     Active Substance: AXICABTAGENE CILOLEUCEL
     Indication: Diffuse large B-cell lymphoma stage IV
     Dosage: 68 ML
     Route: 042
     Dates: start: 20220922, end: 20220922
  2. RITUXIMAB [Concomitant]
     Active Substance: RITUXIMAB
     Dosage: UNK
     Dates: start: 20210910, end: 20210929
  3. CYCLOPHOSPHAMIDE [Concomitant]
     Active Substance: CYCLOPHOSPHAMIDE
     Dosage: UNK
     Dates: start: 20210910, end: 20210929
  4. VINCRISTINE [Concomitant]
     Active Substance: VINCRISTINE
     Dosage: UNK
     Dates: start: 20210910, end: 20210929
  5. DOXORUBICIN [Concomitant]
     Active Substance: DOXORUBICIN
     Dosage: UNK
     Dates: start: 20210910, end: 20210929
  6. PREDNISONE [Concomitant]
     Active Substance: PREDNISONE
     Dosage: UNK
     Dates: start: 20210910, end: 20210929

REACTIONS (1)
  - Cytokine release syndrome [Recovered/Resolved]

NARRATIVE: CASE EVENT DATE: 20220923
